FAERS Safety Report 4699208-X (Version None)
Quarter: 2005Q2

REPORT INFORMATION
  Report Type: 
  Country: None (occurrence: None)
  Receive Date: 20050622
  Receipt Date: 20050610
  Transmission Date: 20051028
  Serious: Yes (Hospitalization)
  Sender: FDA-Public Use
  Company Number: 2005013116

PATIENT
  Age: 50 Year
  Sex: Male
  Weight: 110 kg

DRUGS (4)
  1. AMLODIPINE [Suspect]
     Indication: ESSENTIAL HYPERTENSION
     Dosage: 5 MG (5 MG, 1 IN 1 D), ORAL
     Route: 048
     Dates: end: 20041113
  2. FORTZAAR (HYDROCHLOROTHIAZIDE, LOSARTAN POTASSIUM) [Suspect]
     Indication: HYPERTENSION
     Dosage: 1 DF (1 IN 1 D), ORAL
     Route: 048
     Dates: end: 20041113
  3. NOVOMIX (INSULIN ASPART) [Suspect]
     Indication: DIABETES MELLITUS
     Dosage: SUBCUTANEOUS
     Route: 058
     Dates: start: 20041022
  4. DIABOMET (METFORMIN, GLYCYCLAMIDE) [Suspect]
     Indication: ILL-DEFINED DISORDER
     Dosage: 3 DF (1 IN 1 D)

REACTIONS (4)
  - ANAEMIA [None]
  - BLOOD LACTATE DEHYDROGENASE INCREASED [None]
  - GLUCOSE-6-PHOSPHATE DEHYDROGENASE DEFICIENCY [None]
  - LEUKOCYTOSIS [None]
